FAERS Safety Report 16582942 (Version 1)
Quarter: 2019Q3

REPORT INFORMATION
  Report Type: Spontaneous
  Country: US (occurrence: US)
  Receive Date: 20190603
  Receipt Date: 20190603
  Transmission Date: 20191004
  Serious: Yes (Other)
  Sender: FDA-Public Use
  Company Number: None

PATIENT
  Age: 71 Year
  Sex: Female

DRUGS (18)
  1. METHOTREXATE. [Concomitant]
     Active Substance: METHOTREXATE
  2. PROBIOTIC [Concomitant]
     Active Substance: PROBIOTICS NOS
  3. LIDODERM [Concomitant]
     Active Substance: LIDOCAINE
  4. LISINOPRIL. [Concomitant]
     Active Substance: LISINOPRIL
  5. HUMIRA [Suspect]
     Active Substance: ADALIMUMAB
     Indication: RHEUMATOID ARTHRITIS
     Route: 058
     Dates: start: 20170620
  6. ATORVASTATIN [Concomitant]
     Active Substance: ATORVASTATIN
  7. FREESTYLE [Concomitant]
  8. HYDRALAZINE [Concomitant]
     Active Substance: HYDRALAZINE HYDROCHLORIDE
  9. METFORMIN [Concomitant]
     Active Substance: METFORMIN HYDROCHLORIDE
  10. AMLODIPINE [Concomitant]
     Active Substance: AMLODIPINE BESYLATE
  11. VITAMIN B12 [Concomitant]
     Active Substance: CYANOCOBALAMIN
  12. ZYRTEC [Concomitant]
     Active Substance: CETIRIZINE HYDROCHLORIDE
  13. ASPIRIN 81 [Concomitant]
     Active Substance: ASPIRIN
  14. DOK [Concomitant]
     Active Substance: DOCUSATE SODIUM
  15. SUCRALFATE. [Concomitant]
     Active Substance: SUCRALFATE
  16. CLONIDINE. [Concomitant]
     Active Substance: CLONIDINE
  17. FOLIC ACID. [Concomitant]
     Active Substance: FOLIC ACID
  18. OMEPRAZOLE. [Concomitant]
     Active Substance: OMEPRAZOLE

REACTIONS (1)
  - Hodgkin^s disease [None]
